FAERS Safety Report 17314651 (Version 1)
Quarter: 2020Q1

REPORT INFORMATION
  Report Type: Spontaneous
  Country: US (occurrence: US)
  Receive Date: 20200107
  Receipt Date: 20200107
  Transmission Date: 20200409
  Serious: No
  Sender: FDA-Public Use
  Company Number: None

PATIENT
  Age: 81 Year
  Sex: Male
  Weight: 69.85 kg

DRUGS (7)
  1. CLOPIDOGREL 75MG TABLET, 75 MG TEVA PHARMACEUTICALS [Suspect]
     Active Substance: CLOPIDOGREL BISULFATE
     Indication: CEREBROVASCULAR ACCIDENT
     Dosage: ?          QUANTITY:1 PILL;?
     Route: 048
     Dates: start: 20191014
  2. CLOPIDOGREAL [Concomitant]
  3. EZETIMBE [Concomitant]
     Active Substance: EZETIMIBE
  4. METOPROLOL. [Concomitant]
     Active Substance: METOPROLOL
  5. OMEPROZOLE [Concomitant]
     Active Substance: OMEPRAZOLE
  6. CLONAZEPAM. [Concomitant]
     Active Substance: CLONAZEPAM
  7. TIMOLOL. [Concomitant]
     Active Substance: TIMOLOL

REACTIONS (1)
  - Erythema [None]

NARRATIVE: CASE EVENT DATE: 20191110
